FAERS Safety Report 15878759 (Version 1)
Quarter: 2019Q1

REPORT INFORMATION
  Report Type: Report from Study
  Country: US (occurrence: US)
  Receive Date: 20190128
  Receipt Date: 20190128
  Transmission Date: 20190417
  Serious: No
  Sender: FDA-Public Use
  Company Number: PHEH2019US003806

PATIENT
  Age: 34 Year
  Sex: Female

DRUGS (1)
  1. COSENTYX [Suspect]
     Active Substance: SECUKINUMAB
     Indication: PSORIASIS
     Dosage: 300 MG (2 PENS) FOR 4 WEEKS AND THEN 300 MG (2 PENS) EVERY FOUR WEEKS THEREAFTER
     Route: 058

REACTIONS (2)
  - Nasopharyngitis [Recovering/Resolving]
  - Influenza [Recovering/Resolving]
